FAERS Safety Report 15623295 (Version 3)
Quarter: 2018Q4

REPORT INFORMATION
  Report Type: Spontaneous
  Country: BR (occurrence: BR)
  Receive Date: 20181115
  Receipt Date: 20181214
  Transmission Date: 20190205
  Serious: Yes (Other)
  Sender: FDA-Public Use
  Company Number: BR-PFIZER INC-2018463036

PATIENT
  Age: 72 Year
  Sex: Male

DRUGS (1)
  1. SUTENT [Suspect]
     Active Substance: SUNITINIB MALATE
     Indication: RENAL CANCER METASTATIC
     Dosage: 50 MG, CYCLIC (ONE TABLET OF 50 MG 1X/DAY FOR 14 DAYS, AND REST FOR ONE WEEK)
     Route: 048
     Dates: start: 20181004, end: 201811

REACTIONS (11)
  - Oesophageal injury [Recovered/Resolved]
  - Vomiting [Recovered/Resolved]
  - Hair colour changes [Recovered/Resolved]
  - Diarrhoea [Recovered/Resolved]
  - Dysphagia [Recovered/Resolved]
  - Mouth injury [Recovered/Resolved]
  - Mucosal inflammation [Recovered/Resolved]
  - Pharyngeal injury [Recovered/Resolved]
  - Intentional dose omission [Not Recovered/Not Resolved]
  - Gingival bleeding [Recovered/Resolved]
  - Yellow skin [Recovered/Resolved]

NARRATIVE: CASE EVENT DATE: 201811
